FAERS Safety Report 21443300 (Version 5)
Quarter: 2023Q1

REPORT INFORMATION
  Report Type: Report from Study
  Country: US (occurrence: US)
  Receive Date: 20221012
  Receipt Date: 20230208
  Transmission Date: 20230418
  Serious: No
  Sender: FDA-Public Use
  Company Number: US-NOVARTISTESTPH-NVSC2022US229500

PATIENT
  Sex: Female

DRUGS (1)
  1. COSENTYX [Suspect]
     Active Substance: SECUKINUMAB
     Indication: Product used for unknown indication
     Dosage: 300 MG, QMO (ADMINISTER 2 INJECTIONS (300MG) UNDER THE SKIN EVERY 4 WEEKS)
     Route: 058

REACTIONS (3)
  - Condition aggravated [Unknown]
  - Product physical issue [Unknown]
  - Drug ineffective [Unknown]
